FAERS Safety Report 12633792 (Version 1)
Quarter: 2016Q3

REPORT INFORMATION
  Report Type: Spontaneous
  Country: AU (occurrence: AU)
  Receive Date: 20160809
  Receipt Date: 20160809
  Transmission Date: 20161109
  Serious: Yes (Other)
  Sender: FDA-Public Use
  Company Number: AU-PFIZER INC-2016376820

PATIENT
  Sex: Male

DRUGS (4)
  1. CHLOROTHIAZIDE. [Suspect]
     Active Substance: CHLOROTHIAZIDE
     Dosage: UNK
     Route: 065
  2. ATENOLOL. [Suspect]
     Active Substance: ATENOLOL
     Dosage: UNK
     Route: 065
  3. COLCHICINE. [Suspect]
     Active Substance: COLCHICINE
     Dosage: UNK
     Route: 065
  4. ALLOPURINOL. [Suspect]
     Active Substance: ALLOPURINOL
     Dosage: UNK
     Route: 065

REACTIONS (5)
  - Thrombocytopenia [Unknown]
  - Hepatitis [Unknown]
  - Vomiting [Unknown]
  - Neuritis [Unknown]
  - Neutropenia [Unknown]
